FAERS Safety Report 9049582 (Version 1)
Quarter: 2013Q1

REPORT INFORMATION
  Report Type: Spontaneous
  Country: US (occurrence: US)
  Receive Date: 20130205
  Receipt Date: 20130205
  Transmission Date: 20140127
  Serious: Yes (Hospitalization)
  Sender: FDA-Public Use
  Company Number: PHEH2012US013009

PATIENT
  Age: 76 None
  Sex: Female

DRUGS (5)
  1. EXELON PATCH [Suspect]
     Indication: DEMENTIA ALZHEIMER^S TYPE
     Dosage: 9.5 MG, DAILY
     Route: 062
  2. EXELON PATCH [Suspect]
     Dosage: 4.6 MG, DAILY
     Route: 062
     Dates: start: 20120701, end: 20130115
  3. NAMENDA [Concomitant]
     Indication: MEMORY IMPAIRMENT
     Dosage: 10 UKN, BID
     Route: 048
  4. LISINOPRIL HCT [Concomitant]
     Indication: BLOOD PRESSURE ABNORMAL
     Dosage: 10 TO 12.5 QD UNK
     Route: 048
  5. DOXEPIN [Concomitant]
     Indication: SLEEP DISORDER
     Dosage: 10 AT NIGHT, UNK
     Route: 048

REACTIONS (5)
  - Nightmare [Recovering/Resolving]
  - Malaise [Recovering/Resolving]
  - Dizziness [Recovering/Resolving]
  - Abdominal discomfort [Unknown]
  - Insomnia [Unknown]
